FAERS Safety Report 15916907 (Version 1)
Quarter: 2019Q1

REPORT INFORMATION
  Report Type: Spontaneous
  Country: DK (occurrence: DK)
  Receive Date: 20190205
  Receipt Date: 20190205
  Transmission Date: 20190417
  Serious: Yes (Hospitalization)
  Sender: FDA-Public Use
  Company Number: DK-MYLANLABS-2019M1007564

PATIENT
  Age: 63 Year
  Sex: Female
  Weight: 88 kg

DRUGS (5)
  1. SERTRONE [Suspect]
     Active Substance: SERTRALINE HYDROCHLORIDE
     Indication: ANXIETY
     Dosage: 75 MILLIGRAM, QD (STYRKE: 25MG)
     Route: 048
     Dates: start: 20180226, end: 20180622
  2. QUETIAPINE TEVA [Suspect]
     Active Substance: QUETIAPINE
     Indication: BIPOLAR DISORDER
     Dosage: STYRKE: 25 MG.
     Route: 048
     Dates: start: 20180626, end: 20180702
  3. CISORDINOL                         /00876703/ [Suspect]
     Active Substance: ZUCLOPENTHIXOL
     Indication: PSYCHOTIC DISORDER
     Dosage: 6 MILLIGRAM, QD (STYRKE: 2MG)
     Route: 048
     Dates: start: 20091209, end: 20180701
  4. PREDNISOLON ^DLF^ [Suspect]
     Active Substance: PREDNISOLONE
     Indication: PULMONARY FUNCTION TEST
     Dosage: 37.5 MILLIGRAM, QD (STYRKE: 25 MG.)
     Route: 048
     Dates: start: 20180406, end: 20180416
  5. DYMISTA [Suspect]
     Active Substance: AZELASTINE HYDROCHLORIDE\FLUTICASONE PROPIONATE
     Indication: RHINITIS ALLERGIC
     Dosage: 2 DOSAGE FORM, QD (STYRKE: 137+50 MIKROGRAM/DOSIS. DOSIS: 1 PUST MORGEN OG AFTEN I HVERT N?SEBOR)
     Route: 045
     Dates: start: 20180530, end: 20180709

REACTIONS (7)
  - Suicidal ideation [Recovering/Resolving]
  - Self-injurious ideation [Recovering/Resolving]
  - Thinking abnormal [Recovering/Resolving]
  - Nausea [Recovered/Resolved]
  - Hallucination, auditory [Recovering/Resolving]
  - Tachyphrenia [Recovering/Resolving]
  - Anxiety [Recovering/Resolving]

NARRATIVE: CASE EVENT DATE: 2018
